FAERS Safety Report 4313928-8 (Version None)
Quarter: 2004Q1

REPORT INFORMATION
  Report Type: 
  Country: None (occurrence: None)
  Receive Date: 20040305
  Receipt Date: 20031121
  Transmission Date: 20041129
  Serious: Yes (Other)
  Sender: FDA-Public Use
  Company Number: USA-2003-0011249

PATIENT
  Sex: Female

DRUGS (13)
  1. CHIROCAINE [Suspect]
     Indication: ANALGESIC EFFECT
     Dosage: 0.3%, EPIDURAL
     Route: 008
     Dates: start: 20031118, end: 20031118
  2. CLONIDINE [Concomitant]
  3. METHYLPREDNISOLONE [Concomitant]
  4. MIDAZOLAM HCL [Concomitant]
  5. GAMOLENIC ACID (GAMOLENIC ACID) [Concomitant]
  6. VALPROATE SODIUM [Concomitant]
  7. DICLOFENAC SODIUM [Concomitant]
  8. APOREX (DEXTROPROPOXYPHENE HYDROCHLORIDE) [Concomitant]
  9. TRAZODONE HCL [Concomitant]
  10. BUPRENORPHINE (BUPRENORPHINE) [Concomitant]
  11. LEVOTHYROXINE SODIUM [Concomitant]
  12. VENLAFAXINE (VENLAFAXINE) [Concomitant]
  13. ACETAMINOPHEN W/ CODEINE [Concomitant]

REACTIONS (3)
  - ANAESTHETIC COMPLICATION [None]
  - ANAESTHETIC COMPLICATION NEUROLOGICAL [None]
  - HYPOTENSION [None]
